FAERS Safety Report 9819418 (Version 1)
Quarter: 2014Q1

REPORT INFORMATION
  Report Type: Spontaneous
  Country: US (occurrence: US)
  Receive Date: 20140115
  Receipt Date: 20140115
  Transmission Date: 20141002
  Serious: No
  Sender: FDA-Public Use
  Company Number: US-ENDO PHARMACEUTICALS INC.-HCDA20130100

PATIENT
  Age: 52 Year
  Sex: Male
  Weight: 72.64 kg

DRUGS (1)
  1. HYDROCODONE BITARTRATE / ACETAMINOPHEN 10MG/325MG [Suspect]
     Indication: PAIN
     Dosage: 60/1950 MG
     Route: 048

REACTIONS (4)
  - Panic attack [Not Recovered/Not Resolved]
  - Gait disturbance [Not Recovered/Not Resolved]
  - Feeling abnormal [Not Recovered/Not Resolved]
  - Asthenia [Not Recovered/Not Resolved]
